FAERS Safety Report 9364887 (Version 3)
Quarter: 2014Q1

REPORT INFORMATION
  Report Type: Report from Study
  Country: IE (occurrence: IE)
  Receive Date: 20130624
  Receipt Date: 20140205
  Transmission Date: 20141002
  Serious: Yes (Hospitalization)
  Sender: FDA-Public Use
  Company Number: IE-GLAXOSMITHKLINE-B0893280C

PATIENT
  Age: 70 Year
  Sex: Female
  Weight: 55.7 kg

DRUGS (13)
  1. DABRAFENIB [Suspect]
     Indication: MALIGNANT MELANOMA
     Route: 048
     Dates: start: 20130502
  2. TRAMETINIB [Suspect]
     Indication: MALIGNANT MELANOMA
     Dates: start: 20130502, end: 20130606
  3. XALATAN [Concomitant]
     Indication: GLAUCOMA
     Route: 047
  4. CALCICHEW FORTE [Concomitant]
     Indication: MINERAL SUPPLEMENTATION
     Route: 048
  5. ATROPINE [Concomitant]
     Indication: GLAUCOMA
     Route: 047
  6. ASPIRIN [Concomitant]
     Dosage: 75MG PER DAY
     Route: 048
  7. CIPROFLOXACIN [Concomitant]
     Indication: SEPSIS
     Dosage: 400MG TWICE PER DAY
     Route: 042
     Dates: start: 20130606, end: 20130606
  8. MEROPENEM [Concomitant]
     Indication: SEPSIS
     Dosage: 1000MG TWICE PER DAY
     Route: 042
     Dates: start: 20130606, end: 20130607
  9. CRESTOR [Concomitant]
     Indication: BLOOD CHOLESTEROL
     Dosage: 20MG PER DAY
     Route: 048
  10. SERTRALINE [Concomitant]
     Dosage: 100MG PER DAY
     Route: 048
  11. AZOPT [Concomitant]
     Indication: GLAUCOMA
     Route: 047
  12. BETAGAN [Concomitant]
     Indication: GLAUCOMA
     Route: 047
  13. BISOPROLOL [Concomitant]
     Dosage: 2.5MG PER DAY
     Route: 048

REACTIONS (1)
  - Pyrexia [Recovered/Resolved]
